FAERS Safety Report 8214493-5 (Version None)
Quarter: 2012Q1

REPORT INFORMATION
  Report Type: 
  Country: None (occurrence: None)
  Receive Date: 20120316
  Receipt Date: 20120316
  Transmission Date: 20120608
  Serious: Yes (Hospitalization)
  Sender: FDA-Public Use
  Company Number: None

PATIENT
  Sex: Male
  Weight: 77.11 kg

DRUGS (1)
  1. VALACYCLOVIR [Suspect]
     Indication: HERPES OESOPHAGITIS
     Dosage: 500MG
     Route: 048
     Dates: start: 20111213, end: 20120226

REACTIONS (3)
  - MYALGIA [None]
  - PYREXIA [None]
  - NEUTROPENIA [None]
